FAERS Safety Report 8573192 (Version 3)
Quarter: 2014Q1

REPORT INFORMATION
  Report Type: Report from Study
  Country: PL (occurrence: PL)
  Receive Date: 20120522
  Receipt Date: 20140204
  Transmission Date: 20141002
  Serious: Yes (Death, Hospitalization, Other)
  Sender: FDA-Public Use
  Company Number: PL-CELGENEUS-129-CCAZA-12042521

PATIENT
  Age: 80 Year
  Sex: Female
  Weight: 43 kg

DRUGS (2)
  1. AZACITIDINE INJECTABLE [Suspect]
     Indication: ACUTE MYELOID LEUKAEMIA
     Dosage: 75 MILLIGRAM/SQ. METER
     Route: 058
     Dates: start: 20120221, end: 20120227
  2. AZACITIDINE INJECTABLE [Suspect]
     Dosage: 75 MILLIGRAM/SQ. METER
     Route: 058
     Dates: start: 20120418, end: 20120422

REACTIONS (2)
  - Pneumonia [Fatal]
  - Pseudomembranous colitis [Recovered/Resolved]
